APPROVED DRUG PRODUCT: LOCOID
Active Ingredient: HYDROCORTISONE BUTYRATE
Strength: 0.1%
Dosage Form/Route: SOLUTION;TOPICAL
Application: N019116 | Product #001 | TE Code: AT
Applicant: BAUSCH HEALTH AMERICAS INC
Approved: Feb 25, 1987 | RLD: Yes | RS: Yes | Type: RX